FAERS Safety Report 9535027 (Version 2)
Quarter: 2013Q3

REPORT INFORMATION
  Report Type: Spontaneous
  Country: US (occurrence: US)
  Receive Date: 20130918
  Receipt Date: 20130918
  Transmission Date: 20140515
  Serious: Yes (Other)
  Sender: FDA-Public Use
  Company Number: CHPA2013US013954

PATIENT
  Age: 34 Year
  Sex: Female

DRUGS (2)
  1. TRIAMINIC COLD + ALLERGY ORANGE [Suspect]
     Indication: EAR PRURITUS
     Dosage: 1 TO 2 TSP, PRN
     Route: 048
     Dates: start: 1983
  2. TRIAMINIC COLD + ALLERGY ORANGE [Suspect]
     Indication: HYPERSENSITIVITY

REACTIONS (5)
  - Oropharyngeal pain [Recovered/Resolved]
  - Somnolence [Not Recovered/Not Resolved]
  - Therapeutic response unexpected [Unknown]
  - Off label use [Unknown]
  - Underdose [Unknown]
